FAERS Safety Report 16304957 (Version 1)
Quarter: 2019Q2

REPORT INFORMATION
  Report Type: Spontaneous
  Country: US (occurrence: US)
  Receive Date: 20190513
  Receipt Date: 20190513
  Transmission Date: 20190711
  Serious: Yes (Hospitalization, Other)
  Sender: FDA-Public Use
  Company Number: US-TEVA-2019-US-1046735

PATIENT
  Age: 6 Decade
  Sex: Female

DRUGS (31)
  1. PREDNISONE. [Suspect]
     Active Substance: PREDNISONE
     Indication: CHORIORETINITIS
     Route: 065
  2. THEOPHYLLINE [Concomitant]
     Active Substance: THEOPHYLLINE ANHYDROUS
     Indication: PRODUCT USED FOR UNKNOWN INDICATION
     Route: 065
  3. ALBUTEROL. [Concomitant]
     Active Substance: ALBUTEROL
     Indication: PRODUCT USED FOR UNKNOWN INDICATION
     Dosage: FORMULATION: NEBULIZER
     Route: 055
  4. METHYLPREDNISOLONE. [Suspect]
     Active Substance: METHYLPREDNISOLONE
     Route: 042
  5. PREDNISONE. [Suspect]
     Active Substance: PREDNISONE
     Indication: SCLERAL THINNING
     Route: 048
  6. RITUXIMAB. [Suspect]
     Active Substance: RITUXIMAB
     Indication: BEHCET^S SYNDROME
     Dosage: 4 DOSES
     Route: 065
  7. LOTEPREDNOL [Concomitant]
     Active Substance: LOTEPREDNOL
     Indication: IRIDOCYCLITIS
     Route: 047
  8. PREDNISOLONE. [Suspect]
     Active Substance: PREDNISOLONE
     Indication: CATARACT NUCLEAR
  9. AZATHIOPRINE. [Suspect]
     Active Substance: AZATHIOPRINE
     Indication: SCLERITIS
     Route: 065
  10. PIROXICAM. [Concomitant]
     Active Substance: PIROXICAM
     Indication: SCLERITIS
     Route: 048
  11. VALGANCICLOVIR. [Concomitant]
     Active Substance: VALGANCICLOVIR
     Indication: PRODUCT USED FOR UNKNOWN INDICATION
     Route: 065
  12. CICLOSPORIN [Suspect]
     Active Substance: CYCLOSPORINE
     Indication: BEHCET^S SYNDROME
     Route: 065
  13. PREDNISOLONE. [Suspect]
     Active Substance: PREDNISOLONE
     Indication: CONJUNCTIVAL ULCER
     Route: 047
  14. ADALIMUMAB [Suspect]
     Active Substance: ADALIMUMAB
     Indication: MOUTH ULCERATION
  15. BROMFENAC [Concomitant]
     Active Substance: BROMFENAC SODIUM
     Indication: EYE PAIN
     Route: 047
  16. BRIMONIDINE-TIMOLOL [Concomitant]
     Indication: PRODUCT USED FOR UNKNOWN INDICATION
     Route: 047
  17. LATANOPROST. [Concomitant]
     Active Substance: LATANOPROST
     Indication: PRODUCT USED FOR UNKNOWN INDICATION
     Route: 047
  18. TOCILIZUMAB. [Suspect]
     Active Substance: TOCILIZUMAB
     Indication: IRIDOCYCLITIS
     Route: 065
  19. INFLIXIMAB [Suspect]
     Active Substance: INFLIXIMAB
     Indication: CHORIORETINITIS
     Route: 065
  20. IBUPROFEN. [Suspect]
     Active Substance: IBUPROFEN
     Indication: PAIN IN EXTREMITY
     Route: 065
  21. ATOVAQUONE. [Concomitant]
     Active Substance: ATOVAQUONE
     Indication: PRODUCT USED FOR UNKNOWN INDICATION
     Route: 065
  22. TOCILIZUMAB. [Suspect]
     Active Substance: TOCILIZUMAB
     Indication: UVEITIS
  23. PIROXICAM. [Concomitant]
     Active Substance: PIROXICAM
     Indication: MOUTH ULCERATION
  24. PANTOPRAZOLE [Concomitant]
     Active Substance: PANTOPRAZOLE
     Indication: PRODUCT USED FOR UNKNOWN INDICATION
     Route: 065
  25. ALBUTEROL. [Concomitant]
     Active Substance: ALBUTEROL
     Indication: PRODUCT USED FOR UNKNOWN INDICATION
     Dosage: FORMULATION: INHALER
     Route: 055
  26. LIDOCAINE-DIPHENHYDRAMINE [Concomitant]
     Indication: PRODUCT USED FOR UNKNOWN INDICATION
     Route: 065
  27. TRAMADOL. [Concomitant]
     Active Substance: TRAMADOL
     Indication: PRODUCT USED FOR UNKNOWN INDICATION
     Dosage: AS NEEDED
     Route: 065
  28. DEXAMETHASONE. [Suspect]
     Active Substance: DEXAMETHASONE
     Indication: CHORIORETINITIS
     Route: 050
  29. ADALIMUMAB [Suspect]
     Active Substance: ADALIMUMAB
     Indication: SCLERITIS
     Route: 065
  30. CYCLOPHOSPHAMIDE. [Suspect]
     Active Substance: CYCLOPHOSPHAMIDE
     Indication: BEHCET^S SYNDROME
     Route: 065
  31. ACETAMINOPHEN. [Suspect]
     Active Substance: ACETAMINOPHEN
     Indication: PAIN IN EXTREMITY
     Route: 065

REACTIONS (2)
  - Syphilis [Recovering/Resolving]
  - Eye infection intraocular [Recovering/Resolving]
